FAERS Safety Report 4759630-X (Version None)
Quarter: 2005Q3

REPORT INFORMATION
  Report Type: 
  Country: None (occurrence: None)
  Receive Date: 20050901
  Receipt Date: 20050527
  Transmission Date: 20060218
  Serious: Yes (Hospitalization, Disabling)
  Sender: FDA-Public Use
  Company Number: US-MERCK-0505USA03398

PATIENT
  Age: 49 Year
  Sex: Male
  Weight: 107 kg

DRUGS (19)
  1. VIOXX [Suspect]
     Indication: LIMB INJURY
     Route: 048
     Dates: start: 20020901, end: 20040930
  2. VIOXX [Suspect]
     Indication: BACK PAIN
     Route: 048
     Dates: start: 20020901, end: 20040930
  3. SYNTHROID [Concomitant]
     Indication: THYROID DISORDER
     Route: 065
     Dates: start: 19930101
  4. CARDIZEM [Concomitant]
     Indication: CHEST PAIN
     Route: 065
     Dates: start: 19960101, end: 20030601
  5. CARDIZEM [Concomitant]
     Indication: CARDIAC DISORDER
     Route: 065
     Dates: start: 19960101, end: 20030601
  6. ASPIRIN [Concomitant]
     Indication: PROPHYLAXIS
     Route: 065
     Dates: start: 20000501
  7. PLAVIX [Concomitant]
     Indication: MYOCARDIAL INFARCTION
     Route: 065
     Dates: start: 20000801
  8. LIPITOR [Concomitant]
     Route: 065
     Dates: start: 20001001
  9. METOPROLOL [Concomitant]
     Indication: HYPERTENSION
     Route: 065
     Dates: start: 20030601
  10. METOPROLOL [Concomitant]
     Indication: CARDIAC DISORDER
     Route: 065
     Dates: start: 20030601
  11. LASIX [Concomitant]
     Indication: HYPERTENSION
     Route: 065
     Dates: start: 20030614
  12. LASIX [Concomitant]
     Indication: OEDEMA PERIPHERAL
     Route: 065
     Dates: start: 20030614
  13. MONOPRIL [Concomitant]
     Indication: HYPERTENSION
     Route: 065
     Dates: start: 20030614
  14. OMEGA-3 [Concomitant]
     Route: 065
  15. PREVACID [Concomitant]
     Route: 065
  16. VIAGRA [Concomitant]
     Route: 065
  17. NITROQUICK [Concomitant]
     Route: 065
  18. PRAVACHOL [Concomitant]
     Route: 065
  19. ATENOLOL [Concomitant]
     Route: 065
     Dates: start: 20000901, end: 20030601

REACTIONS (4)
  - BLOOD CHOLESTEROL INCREASED [None]
  - CLOSED HEAD INJURY [None]
  - MYOCARDIAL INFARCTION [None]
  - ROAD TRAFFIC ACCIDENT [None]
